FAERS Safety Report 4421174-2 (Version None)
Quarter: 2004Q3

REPORT INFORMATION
  Report Type: 
  Country: None (occurrence: None)
  Receive Date: 20040804
  Receipt Date: 20040722
  Transmission Date: 20050211
  Serious: Yes (Hospitalization)
  Sender: FDA-Public Use
  Company Number: DE-JNJFOC-20040504278

PATIENT
  Age: 72 Year
  Sex: Female
  Weight: 65 kg

DRUGS (7)
  1. REMICADE [Suspect]
     Indication: POLYARTHRITIS
     Dosage: 200 MG, 1 IN 6 WEEK, INTRAVENOUS
     Route: 042
     Dates: start: 20020531, end: 20031217
  2. MARCUMAR [Suspect]
  3. METHOTREXATE [Suspect]
     Dosage: 15 MG, 1 IN 1 WEEK, INTRAVENOUS
     Route: 042
  4. METJOVED (ALL OTHER THERAPUEUTIC) [Concomitant]
  5. ALLENDRONAT (ALENDRONATE SODIUM) [Concomitant]
  6. ROFECOXIB [Concomitant]
  7. PREDNISONE TAB [Concomitant]

REACTIONS (6)
  - ASPARTATE AMINOTRANSFERASE INCREASED [None]
  - BLOOD UREA INCREASED [None]
  - DIVERTICULUM INTESTINAL HAEMORRHAGIC [None]
  - DRUG INTERACTION [None]
  - PNEUMONIA [None]
  - PULMONARY TUBERCULOSIS [None]
